FAERS Safety Report 10936254 (Version 1)
Quarter: 2015Q1

REPORT INFORMATION
  Report Type: Spontaneous
  Country: US (occurrence: None)
  Receive Date: 20150319
  Receipt Date: 20150319
  Transmission Date: 20150721
  Serious: No
  Sender: FDA-Public Use
  Company Number: None

PATIENT
  Age: 70 Year
  Sex: Female

DRUGS (1)
  1. TECFIDERA [Suspect]
     Active Substance: DIMETHYL FUMARATE
     Indication: MULTIPLE SCLEROSIS
     Dosage: STARTER DOSE
     Route: 048
     Dates: start: 20150226

REACTIONS (4)
  - Gastrointestinal disorder [None]
  - Fatigue [None]
  - Erythema [None]
  - Wrong technique in drug usage process [None]

NARRATIVE: CASE EVENT DATE: 20150318
